FAERS Safety Report 8844750 (Version 2)
Quarter: 2012Q4

REPORT INFORMATION
  Report Type: 
  Country: AT (occurrence: AT)
  Receive Date: 20121017
  Receipt Date: 20121024
  Transmission Date: 20130627
  Serious: Yes (Other)
  Sender: FDA-Public Use
  Company Number: AT-SANOFI-AVENTIS-2012SA075553

PATIENT
  Age: 51 Year
  Sex: Male

DRUGS (6)
  1. OXALIPLATIN [Suspect]
     Indication: RECTAL CANCER
     Dosage: form: bolus
     Route: 065
  2. FLUOROURACIL [Suspect]
     Indication: RECTAL CANCER
     Dosage: received over 48 hr.
     Route: 040
  3. FLUOROURACIL [Suspect]
     Indication: RECTAL CANCER
     Dosage: received as continuous infusion over 48 hr.
     Route: 065
  4. LEUCOVORIN [Suspect]
     Indication: RECTAL CANCER
     Route: 065
  5. PRASUGREL [Concomitant]
     Indication: ACUTE CORONARY SYNDROME
  6. ACETYLSALICYLIC ACID [Concomitant]
     Indication: ACUTE CORONARY SYNDROME

REACTIONS (9)
  - Vasoconstriction [Recovered/Resolved]
  - Chest pain [Recovered/Resolved]
  - Electrocardiogram ST segment elevation [Recovered/Resolved]
  - Electrocardiogram T wave abnormal [Recovered/Resolved]
  - Coronary artery stenosis [Recovered/Resolved]
  - Cardiac failure [Recovered/Resolved]
  - Left ventricular dysfunction [Recovered/Resolved]
  - Hypokinesia [Recovered/Resolved]
  - Left ventricular end-diastolic pressure increased [Recovered/Resolved]
